FAERS Safety Report 13546759 (Version 1)
Quarter: 2017Q2

REPORT INFORMATION
  Report Type: Spontaneous
  Country: DE (occurrence: DE)
  Receive Date: 20170515
  Receipt Date: 20170515
  Transmission Date: 20170830
  Serious: Yes (Life-Threatening)
  Sender: FDA-Public Use
  Company Number: DE-TEVA-766303GER

PATIENT
  Age: 33 Year
  Sex: Male
  Weight: 61.3 kg

DRUGS (3)
  1. CISPLATIN-TEVA 1 MG/ML KONZENTRAT ZUR HERSTELLUNG EINER INFUSIONSL?SUN [Suspect]
     Active Substance: CISPLATIN
     Indication: GERM CELL CANCER
     Dosage: 20 MG/M2 DAY 1-4
     Route: 042
     Dates: start: 20170428, end: 20170501
  2. ETOPOSID [Concomitant]
     Active Substance: ETOPOSIDE
     Indication: GERM CELL CANCER
     Dosage: 100 MG/M2 DAY 1-4
     Route: 042
     Dates: start: 20170428, end: 20170501
  3. BLEOMYCIN [Concomitant]
     Active Substance: BLEOMYCIN SULFATE
     Indication: GERM CELL CANCER
     Dosage: 30 MG DAY 1
     Route: 042
     Dates: start: 20170428, end: 20170428

REACTIONS (8)
  - Thrombocytopenia [Not Recovered/Not Resolved]
  - Disturbance in attention [Not Recovered/Not Resolved]
  - Leukopenia [Not Recovered/Not Resolved]
  - Visual impairment [Not Recovered/Not Resolved]
  - Acute abdomen [Not Recovered/Not Resolved]
  - Acute kidney injury [Not Recovered/Not Resolved]
  - Acute hepatic failure [Not Recovered/Not Resolved]
  - Deafness [Not Recovered/Not Resolved]

NARRATIVE: CASE EVENT DATE: 201705
